FAERS Safety Report 6684613-2 (Version None)
Quarter: 2010Q2

REPORT INFORMATION
  Report Type: 
  Country: None (occurrence: None)
  Receive Date: 20100416
  Receipt Date: 20100414
  Transmission Date: 20101027
  Serious: Yes (Life-Threatening)
  Sender: FDA-Public Use
  Company Number: HN-ROCHE-697250

PATIENT
  Sex: Female

DRUGS (1)
  1. BONIVA [Suspect]
     Indication: OSTEOPOROSIS
     Dosage: FREQUENCY- MONTHLY
     Route: 048
     Dates: start: 20081115

REACTIONS (1)
  - CEREBROVASCULAR ACCIDENT [None]
